FAERS Safety Report 5007845-8 (Version None)
Quarter: 2006Q2

REPORT INFORMATION
  Report Type: 
  Country: None (occurrence: None)
  Receive Date: 20060522
  Receipt Date: 20060511
  Transmission Date: 20061013
  Serious: Yes (Hospitalization)
  Sender: FDA-Public Use
  Company Number: JP-JNJFOC-20060405627

PATIENT
  Age: 64 Year
  Sex: Male

DRUGS (5)
  1. RISPERDAL [Suspect]
     Indication: DRUG USE FOR UNKNOWN INDICATION
     Route: 048
  2. FUROSEMIDE [Concomitant]
  3. GABEXATE MESILATE [Concomitant]
  4. RANITIDINE HYDROCHLORIDE [Concomitant]
  5. ULINASTATIN [Concomitant]

REACTIONS (2)
  - BILE DUCT STONE [None]
  - PANCREATITIS [None]
